FAERS Safety Report 19806713 (Version 1)
Quarter: 2021Q3

REPORT INFORMATION
  Report Type: Spontaneous
  Country: US (occurrence: US)
  Receive Date: 20210907
  Receipt Date: 20210907
  Transmission Date: 20211014
  Serious: No
  Sender: FDA-Public Use
  Company Number: None

PATIENT
  Age: 27 Year
  Sex: Male
  Weight: 61.23 kg

DRUGS (2)
  1. CLOZAPINE (CLOZAPINE 100MG TAB) [Suspect]
     Active Substance: CLOZAPINE
     Indication: SCHIZOAFFECTIVE DISORDER
     Route: 048
     Dates: start: 20210702, end: 20210706
  2. CLOZAPINE (CLOZAPINE 100MG TAB) [Suspect]
     Active Substance: CLOZAPINE
     Indication: BIPOLAR I DISORDER
     Route: 048
     Dates: start: 20210702, end: 20210706

REACTIONS (1)
  - Myocarditis [None]

NARRATIVE: CASE EVENT DATE: 20210706
